FAERS Safety Report 19051999 (Version 2)
Quarter: 2021Q2

REPORT INFORMATION
  Report Type: Spontaneous
  Country: CA (occurrence: CA)
  Receive Date: 20210324
  Receipt Date: 20210419
  Transmission Date: 20210717
  Serious: Yes (Other)
  Sender: FDA-Public Use
  Company Number: CA-PFIZER INC-2021284351

PATIENT
  Age: 54 Year
  Sex: Male
  Weight: 99.79 kg

DRUGS (1)
  1. HEPARIN SODIUM. [Suspect]
     Active Substance: HEPARIN SODIUM
     Dosage: UNK
     Dates: start: 19980705, end: 19980709

REACTIONS (2)
  - Thrombosis [Unknown]
  - Drug hypersensitivity [Unknown]

NARRATIVE: CASE EVENT DATE: 199807
